FAERS Safety Report 20732624 (Version 1)
Quarter: 2022Q2

REPORT INFORMATION
  Report Type: Spontaneous
  Country: TN (occurrence: TN)
  Receive Date: 20220420
  Receipt Date: 20220420
  Transmission Date: 20220721
  Serious: Yes (Hospitalization, Other)
  Sender: FDA-Public Use
  Company Number: TN-ANIPHARMA-2022-TN-000012

PATIENT
  Sex: 0

DRUGS (1)
  1. CIPROFLOXACIN [Suspect]
     Active Substance: CIPROFLOXACIN
     Indication: Product used for unknown indication

REACTIONS (1)
  - Acute febrile neutrophilic dermatosis [Recovered/Resolved]
